FAERS Safety Report 24459809 (Version 1)
Quarter: 2024Q4

REPORT INFORMATION
  Report Type: Spontaneous
  Country: CN (occurrence: CN)
  Receive Date: 20241018
  Receipt Date: 20241018
  Transmission Date: 20250114
  Serious: No
  Sender: ROCHE
  Company Number: CN-ROCHE-3541594

PATIENT
  Age: 60 Year
  Sex: Female

DRUGS (10)
  1. MABTHERA [Suspect]
     Active Substance: RITUXIMAB
     Indication: Extranodal marginal zone B-cell lymphoma (MALT type)
     Dosage: 1ST CYCLE, R-CHOP
     Route: 065
     Dates: start: 20230621
  2. GAZYVA [Suspect]
     Active Substance: OBINUTUZUMAB
     Indication: Extranodal marginal zone B-cell lymphoma (MALT type)
     Dosage: 2ND-8TH CYCLES, G-CHOP, 14/JUL/2023,04/AUG/2023,25/AUG/2023,15-SEP-2023,09/OCT/2023,30/OCT/2023,20/N
     Route: 065
     Dates: start: 20230714
  3. CYCLOPHOSPHAMIDE [Concomitant]
     Active Substance: CYCLOPHOSPHAMIDE
     Dosage: 1ST CYCLE, R-CHOP
     Dates: start: 20230621
  4. CYCLOPHOSPHAMIDE [Concomitant]
     Active Substance: CYCLOPHOSPHAMIDE
     Dosage: 2ND-8TH CYCLES, G-CHOP, 14-JUL-2023,04-AUG-2023,25-AUG-2023,15-SEP-2023,09-OCT-2023,30-OCT-2023,20-N
     Dates: start: 20230714
  5. DOXORUBICIN [Concomitant]
     Active Substance: DOXORUBICIN
     Dosage: 1ST CYCLE, R-CHOP
     Dates: start: 20230621
  6. DOXORUBICIN [Concomitant]
     Active Substance: DOXORUBICIN
     Dosage: 2ND-8TH CYCLES, G-CHOP, 14-JUL-2023,04-AUG-2023,25-AUG-2023,15-SEP-2023,09-OCT-2023,30-OCT-2023,20-N
     Dates: start: 20230714
  7. VINCRISTINE [Concomitant]
     Active Substance: VINCRISTINE
     Dosage: 1ST CYCLE, R-CHOP
     Dates: start: 20230621
  8. VINCRISTINE [Concomitant]
     Active Substance: VINCRISTINE
     Dosage: 2ND-8TH CYCLES, G-CHOP, 14-JUL-2023,04-AUG-2023,25-AUG-2023,15-SEP-2023,09-OCT-2023,30-OCT-2023,20-N
     Dates: start: 20230714
  9. PREDNISONE [Concomitant]
     Active Substance: PREDNISONE
     Dosage: 1ST CYCLE, R-CHOP
     Dates: start: 20230621
  10. PREDNISONE [Concomitant]
     Active Substance: PREDNISONE
     Dosage: 2ND-8TH CYCLES, G-CHOP, 14-JUL-2023,04-AUG-2023,25-AUG-2023,15-SEP-2023,09-OCT-2023,30-OCT-2023,20-N
     Dates: start: 20230714

REACTIONS (2)
  - Off label use [Unknown]
  - No adverse event [Unknown]
